FAERS Safety Report 20144997 (Version 2)
Quarter: 2021Q4

REPORT INFORMATION
  Report Type: Spontaneous
  Country: US (occurrence: US)
  Receive Date: 20211203
  Receipt Date: 20211216
  Transmission Date: 20220303
  Serious: No
  Sender: FDA-Public Use
  Company Number: US-JNJFOC-20211146513

PATIENT
  Age: 72 Year
  Sex: Female
  Weight: 63.560 kg

DRUGS (4)
  1. HALOPERIDOL [Suspect]
     Active Substance: HALOPERIDOL
     Indication: Psychotic disorder
     Route: 048
  2. HALOPERIDOL [Suspect]
     Active Substance: HALOPERIDOL
     Indication: Psychotic disorder
     Route: 048
  3. LITHIUM [Concomitant]
     Active Substance: LITHIUM
  4. ZOLOFT [Concomitant]
     Active Substance: SERTRALINE HYDROCHLORIDE

REACTIONS (7)
  - Tremor [Not Recovered/Not Resolved]
  - Somatic symptom disorder [Recovered/Resolved]
  - Memory impairment [Recovered/Resolved]
  - Anxiety [Recovered/Resolved]
  - Fear [Recovered/Resolved]
  - Flashback [Recovered/Resolved]
  - Nervous system disorder [Unknown]

NARRATIVE: CASE EVENT DATE: 20211001
